FAERS Safety Report 10352953 (Version 1)
Quarter: 2014Q3

REPORT INFORMATION
  Report Type: Spontaneous
  Country: US (occurrence: US)
  Receive Date: 20140730
  Receipt Date: 20140730
  Transmission Date: 20150326
  Serious: No
  Sender: FDA-Public Use
  Company Number: US-ABBVIE-13P-163-1149721-00

PATIENT
  Sex: Female
  Weight: 55.84 kg

DRUGS (9)
  1. CORTISONE [Suspect]
     Active Substance: CORTISONE\HYDROCORTISONE
     Indication: RASH
     Dates: start: 201306
  2. OXYCODONE [Concomitant]
     Active Substance: OXYCODONE
     Indication: SPINAL OPERATION
  3. NYSTATIN. [Concomitant]
     Active Substance: NYSTATIN
     Indication: FUNGAL INFECTION
  4. DIAZEPAM. [Concomitant]
     Active Substance: DIAZEPAM
     Indication: PRODUCT USED FOR UNKNOWN INDICATION
  5. SYNTHROID [Suspect]
     Active Substance: LEVOTHYROXINE SODIUM
     Indication: HYPOTHYROIDISM
     Dates: start: 201306, end: 201307
  6. ARMOUR THYROID [Suspect]
     Active Substance: THYROID, PORCINE\THYROID, UNSPECIFIED
     Indication: THYROID DISORDER
     Dates: start: 201306
  7. ZANAFLEX [Concomitant]
     Active Substance: TIZANIDINE HYDROCHLORIDE
     Indication: PRODUCT USED FOR UNKNOWN INDICATION
  8. BENADRYL [Suspect]
     Active Substance: DIPHENHYDRAMINE HYDROCHLORIDE
     Indication: RASH
     Dates: start: 201306
  9. MORPHINE [Concomitant]
     Active Substance: MORPHINE
     Indication: SPINAL OPERATION
     Dosage: IMMEDIATE RELEASE TABLET
     Route: 048

REACTIONS (15)
  - Asthenia [Recovered/Resolved]
  - Drug ineffective [Unknown]
  - Palpitations [Recovered/Resolved]
  - Unevaluable event [Unknown]
  - Panic attack [Recovered/Resolved]
  - Vulvovaginal candidiasis [Unknown]
  - Malaise [Unknown]
  - Fatigue [Recovered/Resolved]
  - Confusional state [Recovered/Resolved]
  - Fungal skin infection [Recovering/Resolving]
  - Rash generalised [Recovering/Resolving]
  - Feeling abnormal [Unknown]
  - Irritability [Unknown]
  - Depression [Recovered/Resolved]
  - Anxiety [Recovered/Resolved]

NARRATIVE: CASE EVENT DATE: 2013
